FAERS Safety Report 7801500-4 (Version None)
Quarter: 2011Q4

REPORT INFORMATION
  Report Type: 
  Country: None (occurrence: None)
  Receive Date: 20111006
  Receipt Date: 20111006
  Transmission Date: 20120403
  Serious: Yes (Life-Threatening, Hospitalization)
  Sender: FDA-Public Use
  Company Number: None

PATIENT
  Age: 66 Year
  Sex: Male
  Weight: 117.4 kg

DRUGS (2)
  1. GADOPENTETATE DIMEGLUMINE [Suspect]
     Dosage: ONCE IV
     Route: 042
     Dates: start: 20110901, end: 20110901
  2. DIAZEPAM [Suspect]
     Dosage: 5 MG ONCE PO
     Route: 048
     Dates: start: 20110901, end: 20110901

REACTIONS (2)
  - CARDIO-RESPIRATORY ARREST [None]
  - ANAPHYLACTIC REACTION [None]
